FAERS Safety Report 6337291-6 (Version None)
Quarter: 2009Q3

REPORT INFORMATION
  Report Type: 
  Country: None (occurrence: None)
  Receive Date: 20090901
  Receipt Date: 20090901
  Transmission Date: 20100115
  Serious: Yes (Disabling)
  Sender: FDA-Public Use
  Company Number: None

PATIENT
  Sex: Female
  Weight: 68.4932 kg

DRUGS (1)
  1. LEVAQUIN [Suspect]
     Indication: BLADDER DISORDER
     Dosage: 500MG. 1 X DAILY
     Dates: start: 20090604, end: 20090805

REACTIONS (2)
  - ABASIA [None]
  - TENDONITIS [None]
